FAERS Safety Report 9779981 (Version 1)
Quarter: 2013Q4

REPORT INFORMATION
  Report Type: Spontaneous
  Country: IN (occurrence: IN)
  Receive Date: 20131223
  Receipt Date: 20131223
  Transmission Date: 20140711
  Serious: Yes (Other)
  Sender: FDA-Public Use
  Company Number: IN-PFIZER INC-2013365385

PATIENT
  Age: 16 Year
  Sex: Male

DRUGS (2)
  1. PHENYTOIN [Suspect]
     Indication: CONVULSION
     Dosage: 5 MG/KG, 1X/DAY
     Route: 048
  2. CLOBAZAM [Concomitant]
     Indication: CONVULSION
     Dosage: 5 MG, AS NEEDED
     Route: 048

REACTIONS (1)
  - Cerebellar atrophy [Unknown]
